FAERS Safety Report 5077584-6 (Version None)
Quarter: 2006Q3

REPORT INFORMATION
  Report Type: 
  Country: None (occurrence: None)
  Receive Date: 20060810
  Receipt Date: 20060407
  Transmission Date: 20061208
  Serious: No
  Sender: FDA-Public Use
  Company Number: US-GLAXOSMITHKLINE-A0601607A

PATIENT
  Age: 51 Year
  Sex: Female

DRUGS (1)
  1. PAXIL [Suspect]
     Indication: PANIC ATTACK
     Dosage: 60MG PER DAY
     Route: 048
     Dates: start: 19980101, end: 20060404

REACTIONS (1)
  - ADVERSE EVENT [None]
